FAERS Safety Report 8848258 (Version 1)
Quarter: 2012Q4

REPORT INFORMATION
  Report Type: 
  Country: US (occurrence: US)
  Receive Date: 20121018
  Receipt Date: 20121018
  Transmission Date: 20130627
  Serious: Yes (Hospitalization)
  Sender: FDA-Public Use
  Company Number: US-ROCHE-1139618

PATIENT
  Sex: Male
  Weight: 41.9 kg

DRUGS (5)
  1. PROTROPIN [Suspect]
     Indication: SICKLE CELL ANAEMIA
     Dosage: 0.3 mg/kg/week
     Route: 058
     Dates: start: 19950709
  2. PROTROPIN [Suspect]
     Indication: GROWTH HORMONE DEFICIENCY
  3. HUMATROPE [Suspect]
     Indication: PRODUCT USED FOR UNKNOWN INDICATION
     Dosage: 0.50 cc (4.02 mg/cc)
     Route: 058
  4. GLUCAGON [Concomitant]
  5. PROPRANOLOL [Concomitant]

REACTIONS (2)
  - Pain [Unknown]
  - Pyrexia [Unknown]
